FAERS Safety Report 7616554 (Version 9)
Quarter: 2013Q2

REPORT INFORMATION
  Report Type: Spontaneous
  Country: US (occurrence: US)
  Receive Date: 20101004
  Receipt Date: 20130625
  Transmission Date: 20140414
  Serious: Yes (Hospitalization, Other)
  Sender: FDA-Public Use
  Company Number: US-US-EMD SERONO, INC.-7018764

PATIENT
  Sex: Female
  Weight: 91 kg

DRUGS (4)
  1. REBIF [Suspect]
     Indication: MULTIPLE SCLEROSIS
     Route: 058
     Dates: start: 20061101, end: 201301
  2. RAPID RELEASE TYLENOL EXTRA STRENGTH [Concomitant]
     Indication: PREMEDICATION
  3. PNEUMONIA VACCINE [Concomitant]
     Indication: PRODUCT USED FOR UNKNOWN INDICATION
     Dates: start: 2008, end: 2008
  4. PNEUMONIA VACCINE [Concomitant]
     Dates: start: 20101027, end: 20101027

REACTIONS (15)
  - Cardiac septal defect [Not Recovered/Not Resolved]
  - Pulmonary hypertension [Not Recovered/Not Resolved]
  - Clostridium difficile infection [Unknown]
  - Giardiasis [Not Recovered/Not Resolved]
  - Drug hypersensitivity [Not Recovered/Not Resolved]
  - Vaccination complication [Not Recovered/Not Resolved]
  - Nausea [Unknown]
  - Multiple sclerosis relapse [Recovering/Resolving]
  - Hypothyroidism [Unknown]
  - Pyrexia [Not Recovered/Not Resolved]
  - Pain [Unknown]
  - Injection site erythema [Unknown]
  - Injection site pain [Not Recovered/Not Resolved]
  - Urticaria [Unknown]
  - Influenza like illness [Unknown]
